FAERS Safety Report 4649481-9 (Version None)
Quarter: 2005Q2

REPORT INFORMATION
  Report Type: 
  Country: None (occurrence: None)
  Receive Date: 20050331
  Receipt Date: 20050103
  Transmission Date: 20051028
  Serious: No
  Sender: FDA-Public Use
  Company Number: 05P-163-0285197-00

PATIENT
  Age: 46 Year
  Sex: Female
  Weight: 68.0396 kg

DRUGS (8)
  1. HUMIRA [Suspect]
     Indication: RHEUMATOID ARTHRITIS
     Dosage: 40 MG, 1 IN 2 WK, SUBCUTANEOUS
     Route: 058
     Dates: start: 20041202
  2. FOLIC ACID [Concomitant]
  3. ZOCOR [Concomitant]
  4. BUCINDOLOL HYDROCHLORIDE [Concomitant]
  5. TRAZODONE HCL [Concomitant]
  6. ASPIRIN [Concomitant]
  7. OMEPRAZOLE [Concomitant]
  8. CALCIUM GLUCONATE [Concomitant]

REACTIONS (3)
  - INJECTION SITE ERYTHEMA [None]
  - NASOPHARYNGITIS [None]
  - RASH [None]
